FAERS Safety Report 10084675 (Version 3)
Quarter: 2014Q2

REPORT INFORMATION
  Report Type: Spontaneous
  Country: IE (occurrence: IE)
  Receive Date: 20140417
  Receipt Date: 20140516
  Transmission Date: 20141212
  Serious: Yes (Other)
  Sender: FDA-Public Use
  Company Number: IE-PFIZER INC-2014069452

PATIENT
  Age: 22 Year
  Sex: Female
  Weight: 49 kg

DRUGS (4)
  1. LYRICA [Suspect]
     Indication: ANOREXIA NERVOSA
     Dosage: 50 MG, 2X/DAY
     Dates: start: 201204, end: 201403
  2. LYRICA [Suspect]
     Indication: BORDERLINE PERSONALITY DISORDER
  3. PROZAC [Concomitant]
     Dosage: 60 MG, 1X/DAY
     Route: 048
     Dates: start: 2011
  4. YASMIN [Concomitant]
     Dosage: UNK
     Route: 048
     Dates: start: 20130507

REACTIONS (4)
  - Off label use [Unknown]
  - Galactorrhoea [Recovered/Resolved]
  - Blood prolactin increased [Recovered/Resolved]
  - Sex hormone binding globulin increased [Recovered/Resolved]
